FAERS Safety Report 24002585 (Version 1)
Quarter: 2024Q2

REPORT INFORMATION
  Report Type: Report from Study
  Country: US (occurrence: US)
  Receive Date: 20240623
  Receipt Date: 20240623
  Transmission Date: 20240716
  Serious: Yes (Other)
  Sender: FDA-Public Use
  Company Number: US-ABBVIE-5808681

PATIENT
  Sex: Female

DRUGS (2)
  1. HUMIRA [Suspect]
     Active Substance: ADALIMUMAB
     Indication: Product used for unknown indication
     Route: 058
  2. RINVOQ [Suspect]
     Active Substance: UPADACITINIB
     Indication: Product used for unknown indication
     Route: 048
     Dates: start: 2023

REACTIONS (12)
  - Stoma creation [Recovered/Resolved]
  - Abdominal pain upper [Unknown]
  - Dark circles under eyes [Recovered/Resolved]
  - Female genital tract fistula [Recovered/Resolved]
  - Vulvovaginal inflammation [Unknown]
  - Dizziness [Recovered/Resolved]
  - Drug ineffective [Unknown]
  - Therapeutic product effect delayed [Recovered/Resolved]
  - Fistula [Unknown]
  - Anal stenosis [Recovered/Resolved]
  - Skin fissures [Unknown]
  - Subcutaneous abscess [Unknown]
